FAERS Safety Report 8511091-0 (Version None)
Quarter: 2012Q3

REPORT INFORMATION
  Report Type: 
  Country: None (occurrence: None)
  Receive Date: 20120716
  Receipt Date: 20120703
  Transmission Date: 20120928
  Serious: Yes (Hospitalization)
  Sender: FDA-Public Use
  Company Number: KR-COVIDIEN/TYCO HEALTHCARE/MALLINCKRODT-T201202720

PATIENT
  Sex: Female
  Weight: 42 kg

DRUGS (5)
  1. HYDROMORPHONE HCL [Concomitant]
     Indication: PAIN MANAGEMENT
     Dosage: 2 MG, THREE IN ONE DAY
     Route: 048
     Dates: start: 20120608, end: 20120624
  2. DENOGAN [Concomitant]
     Indication: PAIN MANAGEMENT
     Dosage: 1 VIAL
     Dates: start: 20120623, end: 20120624
  3. DUPHALAC [Concomitant]
     Indication: CONSTIPATION
     Dosage: 30 ML, UNK
     Route: 048
     Dates: start: 20120614, end: 20120618
  4. EXALGO [Suspect]
     Dosage: 8 MG, QD
     Route: 048
     Dates: start: 20120622
  5. EXALGO [Suspect]
     Indication: PAIN MANAGEMENT
     Dosage: 4 MG, QD
     Route: 048
     Dates: start: 20120608, end: 20120621

REACTIONS (2)
  - PAIN [None]
  - ASTHENIA [None]
